FAERS Safety Report 9672106 (Version 2)
Quarter: 2014Q2

REPORT INFORMATION
  Report Type: Report from Study
  Country: JP (occurrence: JP)
  Receive Date: 20131106
  Receipt Date: 20140401
  Transmission Date: 20141212
  Serious: Yes (Death, Other)
  Sender: FDA-Public Use
  Company Number: JP-TAKEDA-2013TUS000014

PATIENT
  Sex: 0

DRUGS (11)
  1. FEBURIC [Suspect]
     Indication: HYPERURICAEMIA
     Dosage: 20 MG, QD
     Route: 048
     Dates: start: 20120717, end: 20120816
  2. FEBURIC [Suspect]
     Dosage: 40 MG, QD
     Route: 048
     Dates: start: 20120817, end: 20121030
  3. URSO                               /00465701/ [Concomitant]
     Indication: LIVER DISORDER
     Dosage: 600 MG, QD
     Route: 048
     Dates: start: 19960417, end: 20121030
  4. VITAMIN K1 [Concomitant]
     Indication: HEPATIC CIRRHOSIS
     Dosage: 60 MG, QD
     Route: 048
     Dates: start: 20070808, end: 20121030
  5. LIVACT                             /01504901/ [Concomitant]
     Indication: HEPATIC FAILURE
     Dosage: 3 DF, QD
     Route: 048
     Dates: start: 20091228, end: 20121030
  6. PORTOLAC [Concomitant]
     Indication: HEPATIC FAILURE
     Dosage: 6 DF, QD
     Route: 048
     Dates: start: 20070801, end: 20121030
  7. KANAMYCIN                          /00031502/ [Concomitant]
     Indication: HEPATIC FAILURE
     Dosage: 2250 MG, QD
     Route: 048
     Dates: start: 20071017, end: 20121030
  8. PROMAC                             /01312301/ [Concomitant]
     Indication: HYPOZINCAEMIA
     Dosage: 150 MG, QD
     Route: 048
     Dates: start: 20090610, end: 20121030
  9. BAYASPIRIN [Concomitant]
     Indication: ANGINA PECTORIS
     Dosage: 100 MG, QD
     Route: 048
     Dates: start: 20060529, end: 20121030
  10. LASIX                              /00032601/ [Concomitant]
     Indication: HEPATIC FAILURE
     Dosage: 40 MG, QD
     Route: 048
     Dates: start: 20070530, end: 20121030
  11. LASIX                              /00032601/ [Concomitant]
     Indication: HYPERTENSION

REACTIONS (1)
  - Hepatic cancer [Fatal]
